FAERS Safety Report 5441470-X (Version None)
Quarter: 2007Q3

REPORT INFORMATION
  Report Type: 
  Country: None (occurrence: None)
  Receive Date: 20070904
  Receipt Date: 20070828
  Transmission Date: 20080115
  Serious: Yes (Hospitalization, Disabling, Other)
  Sender: FDA-Public Use
  Company Number: US-ELI_LILLY_AND_COMPANY-US200706002830

PATIENT
  Age: 46 Year
  Sex: Male
  Weight: 117.91 kg

DRUGS (4)
  1. ZYPREXA [Suspect]
     Indication: DEPRESSION
     Dosage: 100 MG, 2/D
     Dates: start: 19970101, end: 19990101
  2. ATENOLOL [Concomitant]
     Dosage: UNK, UNK
     Dates: start: 19990101
  3. LOPRESSOR [Concomitant]
     Dosage: UNK, UNK
     Dates: start: 19990101
  4. CHLOROTHIAZIDE [Concomitant]
     Dosage: UNK, UNK
     Dates: start: 19970101

REACTIONS (10)
  - BLINDNESS [None]
  - BLOOD GLUCOSE ABNORMAL [None]
  - CARDIAC DISORDER [None]
  - CARDIAC FAILURE CONGESTIVE [None]
  - DIABETES MELLITUS [None]
  - GLAUCOMA [None]
  - HYPERTENSION [None]
  - MYOCARDIAL INFARCTION [None]
  - OVERDOSE [None]
  - WEIGHT INCREASED [None]
